FAERS Safety Report 8170588-6 (Version None)
Quarter: 2012Q1

REPORT INFORMATION
  Report Type: 
  Country: None (occurrence: None)
  Receive Date: 20120106
  Receipt Date: 20110804
  Transmission Date: 20120608
  Serious: Yes (Hospitalization)
  Sender: FDA-Public Use
  Company Number: US-006567

PATIENT
  Age: 33 Year
  Sex: Male
  Weight: 80.9 kg

DRUGS (2)
  1. MULTIHANCE [Suspect]
     Indication: NUCLEAR MAGNETIC RESONANCE IMAGING
     Dosage: 5ML ONCE INTRAVENOUS (NOT OTHERWISE SPECIFIED)
     Route: 042
     Dates: start: 20110531, end: 20110531
  2. MULTIHANCE [Suspect]
     Indication: STAPHYLOCOCCAL INFECTION
     Dosage: 5ML ONCE INTRAVENOUS (NOT OTHERWISE SPECIFIED)
     Route: 042
     Dates: start: 20110531, end: 20110531

REACTIONS (1)
  - HYPERSENSITIVITY [None]
